FAERS Safety Report 7010517-1 (Version None)
Quarter: 2010Q3

REPORT INFORMATION
  Report Type: 
  Country: None (occurrence: None)
  Receive Date: 20100909
  Receipt Date: 20100623
  Transmission Date: 20110219
  Serious: Yes (Other)
  Sender: FDA-Public Use
  Company Number: 2010SP035936

PATIENT
  Age: 23 Year
  Sex: Male

DRUGS (1)
  1. SAPHRIS [Suspect]
     Indication: BIPOLAR DISORDER
     Dosage: 10 MG ; BID ; SL
     Route: 060
     Dates: end: 20100623

REACTIONS (2)
  - HYPOAESTHESIA ORAL [None]
  - NEUROLEPTIC MALIGNANT SYNDROME [None]
